FAERS Safety Report 6270887-9 (Version None)
Quarter: 2009Q3

REPORT INFORMATION
  Report Type: 
  Country: None (occurrence: None)
  Receive Date: 20090716
  Receipt Date: 20090707
  Transmission Date: 20100115
  Serious: Yes (Hospitalization)
  Sender: FDA-Public Use
  Company Number: IL-ABBOTT-09P-082-0584023-00

PATIENT
  Age: 48 Year
  Sex: Male

DRUGS (5)
  1. KALETRA [Suspect]
     Indication: HIV INFECTION
  2. LIPITOR [Concomitant]
     Indication: HYPERCHOLESTEROLAEMIA
  3. AMLODIPINE [Concomitant]
     Indication: HYPERTENSION
     Dates: start: 20090601
  4. LEUCOVORIN CALCIUM [Concomitant]
     Indication: DRUG USE FOR UNKNOWN INDICATION
  5. TRUVADA [Concomitant]
     Indication: HIV INFECTION

REACTIONS (6)
  - DIZZINESS [None]
  - DYSPHAGIA [None]
  - MALAISE [None]
  - PARAESTHESIA [None]
  - PRESYNCOPE [None]
  - SPEECH DISORDER [None]
